FAERS Safety Report 7022415-8 (Version None)
Quarter: 2010Q3

REPORT INFORMATION
  Report Type: 
  Country: None (occurrence: None)
  Receive Date: 20100930
  Receipt Date: 20100928
  Transmission Date: 20110219
  Serious: Yes (Other)
  Sender: FDA-Public Use
  Company Number: NZ-ROCHE-720725

PATIENT
  Sex: Female

DRUGS (2)
  1. DOXORUBICIN (NON-ROCHE/NON-COMPARATOR) [Suspect]
     Indication: PRODUCT USED FOR UNKNOWN INDICATION
     Dosage: DOSE, ROUTE, FREQUENCY: NOT PROVIDED
     Route: 065
  2. CYCLOPHOSPHAMIDE [Suspect]
     Indication: PRODUCT USED FOR UNKNOWN INDICATION
     Dosage: DOSE, ROUTE, FREQUENCY: NOT PROVIDED
     Route: 065

REACTIONS (1)
  - DRUG INTOLERANCE [None]
